FAERS Safety Report 22066688 (Version 1)
Quarter: 2023Q1

REPORT INFORMATION
  Report Type: Spontaneous
  Country: FR (occurrence: FR)
  Receive Date: 20230306
  Receipt Date: 20230306
  Transmission Date: 20230417
  Serious: Yes (Other)
  Sender: FDA-Public Use
  Company Number: None

PATIENT
  Age: 91 Year
  Sex: Male

DRUGS (7)
  1. VENLAFAXINE [Suspect]
     Active Substance: VENLAFAXINE HYDROCHLORIDE
     Indication: Product administration error
     Route: 048
     Dates: start: 20221015, end: 20221015
  2. DAFALGAN [Suspect]
     Active Substance: ACETAMINOPHEN
     Indication: Product administration error
     Route: 048
     Dates: start: 20221015, end: 20221015
  3. PREGABALIN [Suspect]
     Active Substance: PREGABALIN
     Indication: Product administration error
     Route: 048
     Dates: start: 20221015, end: 20221015
  4. PROPRANOLOL [Suspect]
     Active Substance: PROPRANOLOL HYDROCHLORIDE
     Indication: Product administration error
     Route: 048
     Dates: start: 20221015, end: 20221015
  5. BACLOFEN [Suspect]
     Active Substance: BACLOFEN
     Indication: Product administration error
     Route: 048
     Dates: start: 20221015, end: 20221015
  6. TROSPIUM CHLORIDE [Suspect]
     Active Substance: TROSPIUM CHLORIDE
     Indication: Product administration error
     Route: 048
     Dates: start: 20221015, end: 20221015
  7. HUMALOG [Suspect]
     Active Substance: INSULIN LISPRO
     Indication: Type 2 diabetes mellitus
     Route: 048
     Dates: start: 20221015, end: 20221015

REACTIONS (3)
  - Hypoglycaemia [Recovered/Resolved]
  - Somnolence [Recovered/Resolved]
  - Product administration error [Recovered/Resolved]

NARRATIVE: CASE EVENT DATE: 20221015
